FAERS Safety Report 14285896 (Version 5)
Quarter: 2021Q3

REPORT INFORMATION
  Report Type: Report from Study
  Country: CO (occurrence: CO)
  Receive Date: 20171214
  Receipt Date: 20210913
  Transmission Date: 20211014
  Serious: Yes (Hospitalization, Other)
  Sender: FDA-Public Use
  Company Number: PHHY2017CO146075

PATIENT
  Age: 73 Year
  Sex: Male
  Weight: 60 kg

DRUGS (5)
  1. SANDOSTATIN LAR DEPOT [Suspect]
     Active Substance: OCTREOTIDE ACETATE
     Dosage: 40 MG, QMO
     Route: 030
  2. SANDOSTATIN LAR DEPOT [Suspect]
     Active Substance: OCTREOTIDE ACETATE
     Dosage: 30 MG, QMO
     Route: 030
     Dates: start: 20170912
  3. SANDOSTATIN LAR DEPOT [Suspect]
     Active Substance: OCTREOTIDE ACETATE
     Indication: GASTROENTEROPANCREATIC NEUROENDOCRINE TUMOUR DISEASE
     Dosage: 20 MG, QMO
     Route: 030
     Dates: start: 20150211
  4. CALCIUM+VITAMIN D3 [Concomitant]
     Active Substance: CALCIUM\CHOLECALCIFEROL
     Indication: PRODUCT USED FOR UNKNOWN INDICATION
     Dosage: UNK
     Route: 065
  5. VERAPAMIL [Concomitant]
     Active Substance: VERAPAMIL HYDROCHLORIDE
     Indication: HYPERTENSION
     Dosage: 120 MG, BID
     Route: 048

REACTIONS (18)
  - Tremor [Recovered/Resolved]
  - Hyperhidrosis [Unknown]
  - Syncope [Recovered/Resolved]
  - Carcinoid crisis [Unknown]
  - Nausea [Unknown]
  - Dizziness [Recovered/Resolved]
  - Drug ineffective [Unknown]
  - Syncope [Unknown]
  - Tremor [Unknown]
  - Erythema [Recovered/Resolved]
  - Intervertebral disc protrusion [Unknown]
  - Malaise [Unknown]
  - Carcinoid crisis [Recovered/Resolved]
  - Hyperhidrosis [Recovered/Resolved]
  - Blood pressure increased [Unknown]
  - Lumbar hernia [Unknown]
  - Pain [Unknown]
  - Recurrent cancer [Unknown]

NARRATIVE: CASE EVENT DATE: 201702
